FAERS Safety Report 9734651 (Version 1)
Quarter: 2013Q4

REPORT INFORMATION
  Report Type: Spontaneous
  Country: GB (occurrence: GB)
  Receive Date: 20131206
  Receipt Date: 20131206
  Transmission Date: 20140711
  Serious: Yes (Other)
  Sender: FDA-Public Use
  Company Number: GB-ASTRAZENECA-2013SE87787

PATIENT
  Age: 62 Year
  Sex: Male
  Weight: 126 kg

DRUGS (14)
  1. ROSUVASTATIN [Suspect]
     Route: 048
     Dates: start: 20130916
  2. ASPIRIN [Concomitant]
     Dates: start: 20130806
  3. BISOPROLOL [Concomitant]
     Dates: start: 20130806
  4. BUSPIRONE HYDROCHLORIDE [Concomitant]
     Dates: start: 20130927, end: 20131117
  5. CO-CODAMOL [Concomitant]
     Dates: start: 20130903, end: 20130915
  6. EZETIMIBE [Concomitant]
     Dates: start: 20130806, end: 20131001
  7. GAVISCON ADVANCE [Concomitant]
     Dates: start: 20130806, end: 20131001
  8. GLICLAZIDE [Concomitant]
     Dates: start: 20130806
  9. GLYCERYL TRINITRATE [Concomitant]
     Dates: start: 20130806
  10. ISOSORBIDE MONONITRATE [Concomitant]
     Dates: start: 20130916
  11. LANSOPRAZOLE [Concomitant]
     Dates: start: 20130806
  12. LEVOTHYROXINE [Concomitant]
     Dates: start: 20130806
  13. PRASUGREL [Concomitant]
     Dates: start: 20130916
  14. RAMIPRIL [Concomitant]
     Dates: start: 20130806

REACTIONS (2)
  - Dyspnoea exertional [Unknown]
  - Myalgia [Unknown]
